FAERS Safety Report 8247471-0 (Version None)
Quarter: 2012Q1

REPORT INFORMATION
  Report Type: 
  Country: None (occurrence: None)
  Receive Date: 20120330
  Receipt Date: 20120329
  Transmission Date: 20120608
  Serious: Yes (Hospitalization)
  Sender: FDA-Public Use
  Company Number: PH-ELI_LILLY_AND_COMPANY-PH201101005789

PATIENT
  Sex: Female
  Weight: 58 kg

DRUGS (11)
  1. ASPIRIN [Concomitant]
     Dosage: 80 MG, DAILY (1/D)
     Route: 048
     Dates: start: 20100725
  2. MICARDIS [Concomitant]
     Indication: HYPERTENSION
     Dates: start: 20080728
  3. ERYTHROPOIETIN HUMAN [Concomitant]
     Indication: RENAL FAILURE CHRONIC
     Dates: start: 20100829
  4. ALDACTONE [Concomitant]
     Indication: HYPERTENSION
     Dates: start: 20100805
  5. ISOSORBID MONONITRATE [Concomitant]
     Indication: PROPHYLAXIS
     Dates: start: 20100805
  6. METOPROLOL SUCCINATE [Concomitant]
     Indication: HYPERTENSION
     Dates: start: 20100726
  7. LANOXIN [Concomitant]
     Indication: PROPHYLAXIS
     Dates: start: 20080728
  8. ESOMEPRAZOLE [Concomitant]
     Indication: PROPHYLAXIS
     Dates: start: 20100726
  9. METFORMIN HCL [Concomitant]
     Indication: DIABETES MELLITUS
     Dates: start: 20080728
  10. PRASUGREL HYDROCHLORIDE [Suspect]
     Indication: ACUTE CORONARY SYNDROME
     Dosage: UNK, DAILY (1/D)
     Route: 048
     Dates: start: 20100729
  11. PHOSPHOLIPIDS W/VITAMINS NOS [Concomitant]
     Indication: ALANINE AMINOTRANSFERASE INCREASED
     Dates: start: 20100729

REACTIONS (2)
  - UPPER GASTROINTESTINAL HAEMORRHAGE [None]
  - OESOPHAGEAL ULCER [None]
